FAERS Safety Report 7652644-1 (Version None)
Quarter: 2011Q3

REPORT INFORMATION
  Report Type: 
  Country: None (occurrence: None)
  Receive Date: 20110728
  Receipt Date: 20110712
  Transmission Date: 20111222
  Serious: Yes (Death, Life-Threatening, Hospitalization)
  Sender: FDA-Public Use
  Company Number: 2011MA008732

PATIENT
  Age: 78 Year
  Sex: Female

DRUGS (11)
  1. ZOLEDRONIC ACID [Suspect]
     Indication: OSTEOPOROSIS
     Dosage: 5 MG;IV
     Route: 042
  2. ROSUVASTATIN [Concomitant]
  3. METOPROLOL TARTRATE [Concomitant]
  4. AMLODIPINE [Concomitant]
  5. ERGOCALCIFEROL [Concomitant]
  6. RISEDRONATE SODIUM [Concomitant]
  7. NATEGLINIDE [Concomitant]
  8. METFORMIN HCL [Suspect]
     Indication: TYPE 2 DIABETES MELLITUS
     Dosage: 850 MG;BID
  9. INDAPAMIDE [Concomitant]
  10. FUROSEMIDE [Concomitant]
  11. GLIMEPIRIDE [Concomitant]

REACTIONS (24)
  - LACTIC ACIDOSIS [None]
  - BLOOD PHOSPHORUS INCREASED [None]
  - UNRESPONSIVE TO STIMULI [None]
  - BLOOD PRESSURE DECREASED [None]
  - DRUG LEVEL INCREASED [None]
  - RENAL INJURY [None]
  - BLOOD UREA INCREASED [None]
  - HEART RATE DECREASED [None]
  - RENAL DISORDER [None]
  - DRY SKIN [None]
  - BLOOD CREATININE INCREASED [None]
  - RESPIRATORY RATE DECREASED [None]
  - BLOOD CREATINE PHOSPHOKINASE INCREASED [None]
  - HYPOTHERMIA [None]
  - BLOOD CALCIUM DECREASED [None]
  - RESPIRATION ABNORMAL [None]
  - BLOOD POTASSIUM INCREASED [None]
  - WHITE BLOOD CELL COUNT INCREASED [None]
  - CONTINUOUS HAEMODIAFILTRATION [None]
  - OEDEMA PERIPHERAL [None]
  - ANURIA [None]
  - PROTEINURIA [None]
  - PERIPHERAL COLDNESS [None]
  - PUPILLARY REFLEX IMPAIRED [None]
